FAERS Safety Report 18381868 (Version 7)
Quarter: 2021Q1

REPORT INFORMATION
  Report Type: Spontaneous
  Country: US (occurrence: US)
  Receive Date: 20201014
  Receipt Date: 20210216
  Transmission Date: 20210419
  Serious: Yes (Hospitalization)
  Sender: FDA-Public Use
  Company Number: US-GLAXOSMITHKLINE-US2020AMR202656

PATIENT
  Age: 68 Year
  Sex: Female

DRUGS (7)
  1. ZOFRAN [Concomitant]
     Active Substance: ONDANSETRON HYDROCHLORIDE
     Indication: PRODUCT USED FOR UNKNOWN INDICATION
     Dosage: UNK
  2. ALBUTEROL. [Concomitant]
     Active Substance: ALBUTEROL
     Indication: PRODUCT USED FOR UNKNOWN INDICATION
     Dosage: UNK
  3. ZEJULA [Suspect]
     Active Substance: NIRAPARIB
     Indication: OVARIAN CANCER
     Dosage: 300 MG, QD
     Dates: start: 20200915
  4. ZEJULA [Suspect]
     Active Substance: NIRAPARIB
     Dosage: 100 MG, QD
     Route: 048
     Dates: end: 20210105
  5. ATORVASTATIN CALCIUM. [Concomitant]
     Active Substance: ATORVASTATIN CALCIUM
     Indication: PRODUCT USED FOR UNKNOWN INDICATION
     Dosage: UNK
  6. ZEJULA [Suspect]
     Active Substance: NIRAPARIB
     Dosage: 300 MG, QD
     Route: 048
  7. ZEJULA [Suspect]
     Active Substance: NIRAPARIB
     Dosage: 1 DF, QD
     Dates: start: 20200916

REACTIONS (16)
  - Abdominal distension [Unknown]
  - Epistaxis [Unknown]
  - Fatigue [Unknown]
  - Dry mouth [Unknown]
  - Product dose omission issue [Unknown]
  - Platelet count decreased [Unknown]
  - Laboratory test abnormal [Unknown]
  - Vomiting [Recovering/Resolving]
  - Multiple allergies [Unknown]
  - Illness [Not Recovered/Not Resolved]
  - Burning sensation [Unknown]
  - Taste disorder [Unknown]
  - Blood count abnormal [Recovering/Resolving]
  - Arthralgia [Unknown]
  - Paraesthesia [Unknown]
  - Secretion discharge [Unknown]

NARRATIVE: CASE EVENT DATE: 20210105
